FAERS Safety Report 9897140 (Version 1)
Quarter: 2014Q1

REPORT INFORMATION
  Report Type: Spontaneous
  Country: US (occurrence: US)
  Receive Date: 20140214
  Receipt Date: 20140214
  Transmission Date: 20141002
  Serious: Yes (Hospitalization)
  Sender: FDA-Public Use
  Company Number: US-009507513-1402USA005500

PATIENT
  Sex: 0

DRUGS (4)
  1. ISENTRESS [Suspect]
     Indication: HIV INFECTION
     Route: 048
  2. PREZISTA [Concomitant]
  3. EPZICOM [Concomitant]
  4. NORVIR [Concomitant]

REACTIONS (2)
  - Mental disorder [Not Recovered/Not Resolved]
  - Drug dose omission [Unknown]
